FAERS Safety Report 4579520-5 (Version None)
Quarter: 2005Q1

REPORT INFORMATION
  Report Type: 
  Country: None (occurrence: None)
  Receive Date: 20050210
  Receipt Date: 20050210
  Transmission Date: 20050727
  Serious: Yes (Other)
  Sender: FDA-Public Use
  Company Number: None

PATIENT
  Sex: Female
  Weight: 56.6996 kg

DRUGS (3)
  1. FENTANYL [Suspect]
     Indication: FIBROMYALGIA
     Dosage: DOSE, TRANSDERMAL
     Route: 062
     Dates: start: 20030401
  2. RELAFEN [Concomitant]
  3. DARVOCET [Concomitant]

REACTIONS (6)
  - DIZZINESS [None]
  - NAUSEA [None]
  - PALLOR [None]
  - PRURITUS [None]
  - VERTIGO [None]
  - VOMITING [None]
